FAERS Safety Report 4693168-3 (Version None)
Quarter: 2005Q2

REPORT INFORMATION
  Report Type: 
  Country: None (occurrence: None)
  Receive Date: 20050617
  Receipt Date: 20050606
  Transmission Date: 20051028
  Serious: Yes (Other)
  Sender: FDA-Public Use
  Company Number: FR-JNJFOC-20050603838

PATIENT
  Age: 62 Year
  Sex: Female

DRUGS (3)
  1. TRAMADOL HCL [Suspect]
     Route: 049
  2. DOLIPRANE [Concomitant]
     Route: 065
  3. DAFLON [Concomitant]
     Route: 065

REACTIONS (3)
  - DELIRIUM [None]
  - DRUG WITHDRAWAL SYNDROME [None]
  - HALLUCINATION, VISUAL [None]
